FAERS Safety Report 10507344 (Version 1)
Quarter: 2014Q4

REPORT INFORMATION
  Report Type: Spontaneous
  Country: US (occurrence: None)
  Receive Date: 20141008
  Receipt Date: 20141008
  Transmission Date: 20150528
  Serious: Yes (Hospitalization)
  Sender: FDA-Public Use
  Company Number: None

PATIENT
  Age: 66 Year
  Sex: Female
  Weight: 68.04 kg

DRUGS (2)
  1. RECLAST [Suspect]
     Active Substance: ZOLEDRONIC ACID
     Indication: OSTEOPOROSIS
     Dosage: YEARLY INFUSION, ONCE A YEAR
  2. RECLAST [Suspect]
     Active Substance: ZOLEDRONIC ACID
     Indication: BONE DISORDER
     Dosage: YEARLY INFUSION, ONCE A YEAR

REACTIONS (9)
  - Palpitations [None]
  - Diarrhoea [None]
  - Cardiac disorder [None]
  - Asthenia [None]
  - Malaise [None]
  - Pyrexia [None]
  - Cough [None]
  - Influenza like illness [None]
  - Dyspnoea [None]

NARRATIVE: CASE EVENT DATE: 20140925
